FAERS Safety Report 23069191 (Version 1)
Quarter: 2023Q4

REPORT INFORMATION
  Report Type: Spontaneous
  Country: FR (occurrence: FR)
  Receive Date: 20231016
  Receipt Date: 20231016
  Transmission Date: 20240110
  Serious: Yes (Hospitalization)
  Sender: FDA-Public Use
  Company Number: None

PATIENT
  Age: 62 Year
  Sex: Female
  Weight: 65 kg

DRUGS (7)
  1. METHYLPREDNISOLONE SODIUM SUCCINATE [Suspect]
     Active Substance: METHYLPREDNISOLONE SODIUM SUCCINATE
     Indication: Immune-mediated pericarditis
     Dosage: 120 MG, DAILY
     Route: 042
     Dates: start: 20230607, end: 20230611
  2. METHYLPREDNISOLONE SODIUM SUCCINATE [Suspect]
     Active Substance: METHYLPREDNISOLONE SODIUM SUCCINATE
     Dosage: 70 MG, DAILY
     Route: 042
     Dates: start: 20230612, end: 20230615
  3. PREDNISONE [Suspect]
     Active Substance: PREDNISONE
     Indication: Immune-mediated pericarditis
     Dosage: 70 MG, DAILY, THEN GRADUAL DECREASE
     Route: 048
     Dates: start: 20230616, end: 20230725
  4. YERVOY [Suspect]
     Active Substance: IPILIMUMAB
     Indication: Malignant melanoma
     Dosage: 200 MG, MONTHLY, 800 MG TOTAL
     Route: 042
     Dates: start: 20230307, end: 20230509
  5. OPDIVO [Suspect]
     Active Substance: NIVOLUMAB
     Indication: Malignant melanoma
     Dosage: 67 MG, MONTHLY, EVERY 4 WEEKS, 335 MG TOTAL
     Route: 042
     Dates: start: 20230307, end: 20230725
  6. PREGABALIN [Concomitant]
     Active Substance: PREGABALIN
     Dosage: UNK
  7. TARKA [Concomitant]
     Active Substance: TRANDOLAPRIL\VERAPAMIL HYDROCHLORIDE
     Dosage: UNK

REACTIONS (3)
  - Duodenitis [Recovering/Resolving]
  - Rash maculo-papular [Unknown]
  - Off label use [Unknown]

NARRATIVE: CASE EVENT DATE: 20230618
